FAERS Safety Report 5180260-2 (Version None)
Quarter: 2007Q1

REPORT INFORMATION
  Report Type: 
  Country: None (occurrence: None)
  Receive Date: 20061212
  Receipt Date: 20061127
  Transmission Date: 20070707
  Serious: Yes (Hospitalization)
  Sender: FDA-Public Use
  Company Number: 2006RR-04689

PATIENT
  Age: 97 Year
  Sex: Female

DRUGS (1)
  1. CIPROFLOXACIN [Suspect]
     Indication: DRUG USE FOR UNKNOWN INDICATION
     Dosage: UNK, UNK, UNK

REACTIONS (6)
  - BRONCHOPNEUMONIA [None]
  - HAEMOGLOBIN DECREASED [None]
  - PYURIA [None]
  - TUBERCULOSIS [None]
  - URINARY TRACT INFECTION [None]
  - WEIGHT INCREASED [None]
